FAERS Safety Report 6214129-9 (Version None)
Quarter: 2009Q2

REPORT INFORMATION
  Report Type: 
  Country: None (occurrence: None)
  Receive Date: 20090604
  Receipt Date: 20090601
  Transmission Date: 20091009
  Serious: Yes (Hospitalization)
  Sender: FDA-Public Use
  Company Number: US-BIOGENIDEC-2009BI012171

PATIENT
  Age: 47 Year
  Sex: Female
  Weight: 87 kg

DRUGS (12)
  1. TYSABRI [Suspect]
     Indication: MULTIPLE SCLEROSIS
     Route: 042
     Dates: start: 20071206
  2. ZANAFLEX [Concomitant]
     Route: 048
  3. ZANAFLEX [Concomitant]
     Route: 048
  4. LYRICA [Concomitant]
     Route: 048
  5. PERCOCET [Concomitant]
     Route: 048
  6. PROVIGIL [Concomitant]
     Route: 048
  7. FIORICET [Concomitant]
     Indication: MIGRAINE
  8. KEPPRA [Concomitant]
     Indication: CONVULSION
     Route: 048
     Dates: end: 20090417
  9. ZOLOFT [Concomitant]
     Route: 048
  10. KLONOPIN [Concomitant]
  11. OXYCONTIN [Concomitant]
     Route: 048
  12. ALBUTEROL [Concomitant]

REACTIONS (10)
  - BLOOD PRESSURE INCREASED [None]
  - CONVULSION [None]
  - DIZZINESS [None]
  - FALL [None]
  - FATIGUE [None]
  - INCONTINENCE [None]
  - INSOMNIA [None]
  - PAIN [None]
  - STRESS [None]
  - URINARY TRACT DISORDER [None]
